FAERS Safety Report 10162368 (Version 1)
Quarter: 2014Q2

REPORT INFORMATION
  Report Type: Spontaneous
  Country: US (occurrence: US)
  Receive Date: 20140509
  Receipt Date: 20140509
  Transmission Date: 20141212
  Serious: Yes (Hospitalization)
  Sender: FDA-Public Use
  Company Number: US-BAYER-2014-067692

PATIENT
  Age: 25 Year
  Sex: Female

DRUGS (7)
  1. YASMIN [Suspect]
  2. YAZ [Suspect]
  3. IMODIUM [Concomitant]
  4. MORPHINE [Concomitant]
     Indication: PAIN MANAGEMENT
  5. NASAREL [Concomitant]
     Dosage: 29 MCG
     Route: 045
  6. NASAREL [Concomitant]
  7. AMOXICILLIN [Concomitant]
     Dosage: 500 MG,TID
     Route: 048

REACTIONS (1)
  - Pulmonary embolism [None]
